FAERS Safety Report 8369632 (Version 2)
Quarter: 2013Q1

REPORT INFORMATION
  Report Type: Report from Study
  Country: US (occurrence: US)
  Receive Date: 20120128
  Receipt Date: 20130129
  Transmission Date: 20140127
  Serious: No
  Sender: FDA-Public Use
  Company Number: US-ABBOTT-11P-163-0834386-00

PATIENT
  Age: 67 Year
  Sex: Female
  Weight: 68.1 kg

DRUGS (3)
  1. HUMIRA 40 MG/0.8 ML PEN [Suspect]
     Indication: PSORIASIS
     Route: 058
     Dates: start: 20110623
  2. HUMIRA 40 MG/0.8 ML PEN [Suspect]
     Dates: start: 20110919, end: 20110919
  3. METFORMIN [Concomitant]
     Indication: DIABETES MELLITUS

REACTIONS (9)
  - Headache [Recovered/Resolved]
  - Injection site pain [Recovered/Resolved]
  - Nervousness [Recovered/Resolved]
  - Headache [Recovered/Resolved]
  - Asthenia [Recovered/Resolved]
  - Nausea [Recovered/Resolved]
  - Fall [Recovered/Resolved]
  - Abdominal discomfort [Recovered/Resolved]
  - Diarrhoea [Recovered/Resolved]
